FAERS Safety Report 4444479-8 (Version None)
Quarter: 2004Q3

REPORT INFORMATION
  Report Type: 
  Country: None (occurrence: None)
  Receive Date: 20040902
  Receipt Date: 20040818
  Transmission Date: 20050211
  Serious: Yes (Death)
  Sender: FDA-Public Use
  Company Number: A03200402802

PATIENT
  Sex: Female
  Weight: 181.4388 kg

DRUGS (3)
  1. DEMEROL [Suspect]
     Dates: start: 20040101, end: 20040101
  2. DURAGESIC - FENTANYL - PATCH - OTHER [Suspect]
     Indication: PAIN
     Dosage: ^50 MCG/HOUR^ - TRANSDERMAL
     Route: 062
     Dates: end: 20040101
  3. HYDROXYZINE EMBONATE [Concomitant]

REACTIONS (1)
  - DRUG INTERACTION [None]
